FAERS Safety Report 25772860 (Version 1)
Quarter: 2025Q3

REPORT INFORMATION
  Report Type: Spontaneous
  Country: GB (occurrence: GB)
  Receive Date: 20250908
  Receipt Date: 20250908
  Transmission Date: 20251021
  Serious: Yes (Hospitalization, Disabling, Other)
  Sender: HIKMA
  Company Number: None

PATIENT

DRUGS (1)
  1. CIPROFLOXACIN [Suspect]
     Active Substance: CIPROFLOXACIN
     Indication: Solar lentigo
     Route: 065

REACTIONS (8)
  - Heart rate [Not Recovered/Not Resolved]
  - Heart rate irregular [Unknown]
  - Pain in extremity [Unknown]
  - Sleep disorder [Unknown]
  - Tinnitus [Unknown]
  - Dizziness [Unknown]
  - Chest pain [Unknown]
  - Arthralgia [Unknown]

NARRATIVE: CASE EVENT DATE: 20230101
